FAERS Safety Report 9636546 (Version 1)
Quarter: 2013Q4

REPORT INFORMATION
  Report Type: Spontaneous
  Country: US (occurrence: None)
  Receive Date: 20131017
  Receipt Date: 20131017
  Transmission Date: 20140711
  Serious: Yes (Life-Threatening)
  Sender: FDA-Public Use
  Company Number: 2013AP008850

PATIENT
  Age: 37 Year
  Sex: Male

DRUGS (2)
  1. ZOLPIDEM TARTRATE TABLETS [Suspect]
     Indication: INSOMNIA
  2. BUPROPION HYDROCHLORIDE TABLETS [Suspect]
     Indication: NICOTINE DEPENDENCE

REACTIONS (5)
  - Abnormal dreams [None]
  - Amnestic disorder [None]
  - Intentional self-injury [None]
  - Disorientation [None]
  - Incoherent [None]
